FAERS Safety Report 13015529 (Version 1)
Quarter: 2016Q4

REPORT INFORMATION
  Report Type: Spontaneous
  Country: BR (occurrence: BR)
  Receive Date: 20161212
  Receipt Date: 20161212
  Transmission Date: 20170207
  Serious: Yes (Death, Life-Threatening, Hospitalization, Other)
  Sender: FDA-Public Use
  Company Number: BR-ALEXION PHARMACEUTICALS INC.-A201609558

PATIENT
  Age: 62 Year
  Sex: Male
  Weight: 40 kg

DRUGS (5)
  1. SOLIRIS [Suspect]
     Active Substance: ECULIZUMAB
     Indication: HAEMOLYTIC URAEMIC SYNDROME
     Dosage: 900 MG, QW
     Route: 042
     Dates: start: 20161125
  2. CIPROFLOXACIN. [Concomitant]
     Active Substance: CIPROFLOXACIN
     Indication: PROPHYLAXIS
     Route: 065
  3. ROCEFIN [Concomitant]
     Active Substance: CEFTRIAXONE SODIUM
     Indication: PROPHYLAXIS
     Route: 065
  4. METOTREXATO                        /00113801/ [Concomitant]
     Active Substance: METHOTREXATE
     Indication: RHEUMATOID ARTHRITIS
     Route: 065
  5. SOLIRIS [Suspect]
     Active Substance: ECULIZUMAB
     Dosage: 1200 MG, UNK

REACTIONS (13)
  - Haemoglobin decreased [Unknown]
  - Lung infection [Unknown]
  - Cardio-respiratory arrest [Fatal]
  - Blood potassium increased [Unknown]
  - Blood lactate dehydrogenase increased [Unknown]
  - Septic shock [Fatal]
  - Haemolysis [Unknown]
  - Shock [Fatal]
  - Infection [Fatal]
  - Hypotension [Unknown]
  - Headache [Recovered/Resolved]
  - General physical health deterioration [Unknown]
  - Pneumonia bacterial [Fatal]

NARRATIVE: CASE EVENT DATE: 201611
